FAERS Safety Report 4572936-2 (Version None)
Quarter: 2005Q1

REPORT INFORMATION
  Report Type: 
  Country: None (occurrence: None)
  Receive Date: 20050208
  Receipt Date: 20040625
  Transmission Date: 20050727
  Serious: Yes (Life-Threatening, Hospitalization, Disabling, Other)
  Sender: FDA-Public Use
  Company Number: US-GLAXOSMITHKLINE-A0518928A

PATIENT
  Age: 31 Year
  Sex: Male

DRUGS (3)
  1. PAXIL [Suspect]
     Indication: ANXIETY DISORDER
     Route: 048
     Dates: start: 19970301, end: 20011008
  2. AMBIEN [Concomitant]
     Indication: SLEEP DISORDER
     Dosage: 10MG AS REQUIRED
     Route: 048
  3. LEVSIN PB [Concomitant]
     Dosage: .125MG AS REQUIRED

REACTIONS (16)
  - AGGRESSION [None]
  - AGITATION [None]
  - AMNESIA [None]
  - ANGER [None]
  - CRYING [None]
  - DELUSION [None]
  - DEPRESSION [None]
  - DRUG WITHDRAWAL SYNDROME [None]
  - FEAR [None]
  - HALLUCINATION, AUDITORY [None]
  - HOMICIDAL IDEATION [None]
  - INTENTIONAL MISUSE [None]
  - SCREAMING [None]
  - SLEEP DISORDER [None]
  - SUICIDAL IDEATION [None]
  - SUICIDE ATTEMPT [None]
